FAERS Safety Report 17742599 (Version 1)
Quarter: 2020Q2

REPORT INFORMATION
  Report Type: Spontaneous
  Country: US (occurrence: US)
  Receive Date: 20200504
  Receipt Date: 20200504
  Transmission Date: 20200714
  Serious: Yes (Death)
  Sender: FDA-Public Use
  Company Number: US-MALLINCKRODT-T202001933

PATIENT

DRUGS (2)
  1. INOMAX [Suspect]
     Active Substance: NITRIC OXIDE
     Indication: ACUTE RESPIRATORY DISTRESS SYNDROME
     Dosage: 40PPM INHALATION
     Route: 055
     Dates: end: 20200422
  2. INOMAX [Suspect]
     Active Substance: NITRIC OXIDE
     Indication: CORONAVIRUS INFECTION

REACTIONS (3)
  - Product use in unapproved indication [Unknown]
  - Coronavirus infection [Fatal]
  - Product use issue [Unknown]
